FAERS Safety Report 11170755 (Version 1)
Quarter: 2015Q2

REPORT INFORMATION
  Report Type: Spontaneous
  Country: US (occurrence: None)
  Receive Date: 20150515
  Receipt Date: 20150515
  Transmission Date: 20150821
  Serious: Yes (Hospitalization, Other)
  Sender: FDA-Public Use
  Company Number: 093350

PATIENT
  Age: 54 Year
  Sex: Female

DRUGS (1)
  1. CIMZIA [Suspect]
     Active Substance: CERTOLIZUMAB PEGOL
     Indication: CROHN^S DISEASE
     Dosage: EV 4 WEEKS
     Dates: start: 20111121, end: 2013

REACTIONS (4)
  - Atrial fibrillation [None]
  - Sinusitis [None]
  - Impaired driving ability [None]
  - Insomnia [None]

NARRATIVE: CASE EVENT DATE: 2013
